FAERS Safety Report 21321076 (Version 1)
Quarter: 2022Q3

REPORT INFORMATION
  Report Type: Spontaneous
  Country: US (occurrence: US)
  Receive Date: 20220912
  Receipt Date: 20220912
  Transmission Date: 20221026
  Serious: No
  Sender: FDA-Public Use
  Company Number: US-BRISTOL-MYERS SQUIBB COMPANY-2022-104201

PATIENT
  Age: 69 Year
  Sex: Male
  Weight: 90.718 kg

DRUGS (1)
  1. REVLIMID [Suspect]
     Active Substance: LENALIDOMIDE
     Indication: Plasma cell myeloma
     Dosage: FREQUENCY: 3 WEEK , 1 WEEK OFF
     Route: 048
     Dates: start: 20220801

REACTIONS (1)
  - Gastrointestinal disorder [Unknown]
